FAERS Safety Report 21438502 (Version 1)
Quarter: 2022Q4

REPORT INFORMATION
  Report Type: Spontaneous
  Country: DE (occurrence: DE)
  Receive Date: 20221011
  Receipt Date: 20221011
  Transmission Date: 20230113
  Serious: Yes (Other)
  Sender: FDA-Public Use
  Company Number: DE-ALKEM LABORATORIES LIMITED-DE-ALKEM-2022-10582

PATIENT
  Sex: Female

DRUGS (10)
  1. FINGOLIMOD [Suspect]
     Active Substance: FINGOLIMOD
     Indication: Multiple sclerosis
     Dosage: 0.5 MILLIGRAM (CAPSULE, HARD)
     Route: 048
     Dates: start: 20170131
  2. CETIRIZINE [Concomitant]
     Active Substance: CETIRIZINE HYDROCHLORIDE
     Indication: Dermatitis atopic
     Dosage: UNK, QD (EVERY 1 DAY )
     Route: 065
     Dates: start: 20150914
  3. CITALOPRAM [Concomitant]
     Active Substance: CITALOPRAM HYDROBROMIDE
     Indication: Depression
     Dosage: 20 MILLIGRAM, QD (EVERY 1 DAY )
     Route: 065
     Dates: start: 20090101
  4. CHOLECALCIFEROL [Concomitant]
     Active Substance: CHOLECALCIFEROL
     Indication: Vitamin D deficiency
     Dosage: 20000 INTERNATIONAL UNIT
     Route: 065
     Dates: start: 20130916
  5. DIMETHINDENE MALEATE [Concomitant]
     Active Substance: DIMETHINDENE MALEATE
     Indication: Dermatitis atopic
     Dosage: UNK
     Route: 065
  6. FEXOFENADINE [Concomitant]
     Active Substance: FEXOFENADINE HYDROCHLORIDE
     Indication: Dermatitis atopic
     Dosage: 360 MILLIGRAM, QD (EVERY 1 DAY )
     Route: 065
     Dates: start: 20130607
  7. LORATADINE [Concomitant]
     Active Substance: LORATADINE
     Indication: Dermatitis atopic
     Dosage: 20 MILLIGRAM, QD (EVERY 1 DAY)
     Route: 065
     Dates: start: 20150914
  8. MOMETASONE FUROATE [Concomitant]
     Active Substance: MOMETASONE FUROATE
     Indication: Dermatitis atopic
     Dosage: 2 DOSAGE FORM, QD (MOMETASONE FUROATE)
     Route: 065
     Dates: start: 20190304, end: 20190313
  9. ACETAMINOPHEN [Concomitant]
     Active Substance: ACETAMINOPHEN
     Indication: Headache
     Dosage: 500 MILLIGRAM
     Route: 065
  10. PIMECROLIMUS [Concomitant]
     Active Substance: PIMECROLIMUS
     Indication: Dermatitis atopic
     Dosage: UNK, QD (EVERY 1 DAY )
     Route: 065
     Dates: start: 20191121

REACTIONS (10)
  - Dermatitis atopic [Unknown]
  - Back pain [Unknown]
  - Neurodermatitis [Unknown]
  - Constipation [Unknown]
  - Micturition urgency [Unknown]
  - Pyrexia [Unknown]
  - Concomitant disease aggravated [Unknown]
  - Pruritus [Unknown]
  - Gamma-glutamyltransferase increased [Not Recovered/Not Resolved]
  - Aspartate aminotransferase increased [Recovered/Resolved]

NARRATIVE: CASE EVENT DATE: 20180504
